FAERS Safety Report 19556846 (Version 2)
Quarter: 2023Q1

REPORT INFORMATION
  Report Type: Report from Study
  Country: FR (occurrence: FR)
  Receive Date: 20210715
  Receipt Date: 20230328
  Transmission Date: 20230418
  Serious: Yes (Other)
  Sender: FDA-Public Use
  Company Number: FR-TAKEDA-FR201850834

PATIENT
  Age: 56 Year
  Sex: Female

DRUGS (12)
  1. TEDUGLUTIDE [Suspect]
     Active Substance: TEDUGLUTIDE
     Indication: Short-bowel syndrome
     Dosage: 2.4 MILLIGRAM, QD
     Route: 042
     Dates: start: 20170529, end: 20180524
  2. TEDUGLUTIDE [Suspect]
     Active Substance: TEDUGLUTIDE
     Indication: Short-bowel syndrome
     Dosage: 2.4 MILLIGRAM, QD
     Route: 042
     Dates: start: 20170529, end: 20180524
  3. TEDUGLUTIDE [Suspect]
     Active Substance: TEDUGLUTIDE
     Indication: Short-bowel syndrome
     Dosage: 2.4 MILLIGRAM, QD
     Route: 042
     Dates: start: 20170529, end: 20180524
  4. TEDUGLUTIDE [Suspect]
     Active Substance: TEDUGLUTIDE
     Indication: Short-bowel syndrome
     Dosage: 2.4 MILLIGRAM, QD
     Route: 042
     Dates: start: 20170529, end: 20180524
  5. TEDUGLUTIDE [Suspect]
     Active Substance: TEDUGLUTIDE
     Dosage: 2.4 MILLIGRAM, QD
     Route: 042
     Dates: start: 20180607, end: 20190425
  6. TEDUGLUTIDE [Suspect]
     Active Substance: TEDUGLUTIDE
     Dosage: 2.4 MILLIGRAM, QD
     Route: 042
     Dates: start: 20180607, end: 20190425
  7. TEDUGLUTIDE [Suspect]
     Active Substance: TEDUGLUTIDE
     Dosage: 2.4 MILLIGRAM, QD
     Route: 042
     Dates: start: 20180607, end: 20190425
  8. TEDUGLUTIDE [Suspect]
     Active Substance: TEDUGLUTIDE
     Dosage: 2.4 MILLIGRAM, QD
     Route: 042
     Dates: start: 20180607, end: 20190425
  9. LIDOCAINE [Concomitant]
     Active Substance: LIDOCAINE
     Indication: Carpal tunnel syndrome
     Dosage: UNK
     Route: 061
     Dates: start: 201804
  10. VITAMIN D3 [Concomitant]
     Active Substance: CHOLECALCIFEROL
     Indication: Supplementation therapy
     Dosage: 200000 INTERNATIONAL UNIT, SINGLE
     Route: 058
     Dates: start: 201806, end: 201806
  11. VITAMIN B12 [Concomitant]
     Active Substance: CYANOCOBALAMIN
     Indication: Supplementation therapy
     Dosage: 1 MILLIGRAM, SINGLE
     Route: 058
     Dates: start: 201806, end: 201806
  12. ACLASTA [Concomitant]
     Active Substance: ZOLEDRONIC ACID
     Indication: Osteoporosis
     Dosage: 5 MILLIGRAM, SINGLE
     Route: 042
     Dates: start: 20180528, end: 20180528

REACTIONS (2)
  - Cataract [Not Recovered/Not Resolved]
  - Xanthelasma [Not Recovered/Not Resolved]

NARRATIVE: CASE EVENT DATE: 20180731
